FAERS Safety Report 25321349 (Version 2)
Quarter: 2025Q3

REPORT INFORMATION
  Report Type: Report from Study
  Country: CR (occurrence: CR)
  Receive Date: 20250515
  Receipt Date: 20250809
  Transmission Date: 20251020
  Serious: Yes (Other)
  Sender: ALEXION PHARMACEUTICALS
  Company Number: CR-AstraZeneca-2024A204043

PATIENT
  Sex: Male

DRUGS (1)
  1. DAPAGLIFLOZIN\METFORMIN HYDROCHLORIDE [Suspect]
     Active Substance: DAPAGLIFLOZIN\METFORMIN HYDROCHLORIDE
     Indication: Blood glucose abnormal
     Dosage: 10 MILLIGRAM, Q12H

REACTIONS (6)
  - Diabetic metabolic decompensation [Unknown]
  - Schizophrenia [Unknown]
  - Cerebral palsy [Unknown]
  - Off label use [Unknown]
  - Blood glucose increased [Unknown]
  - Blood cholesterol increased [Unknown]
